FAERS Safety Report 7765900-3 (Version None)
Quarter: 2011Q3

REPORT INFORMATION
  Report Type: 
  Country: None (occurrence: None)
  Receive Date: 20110921
  Receipt Date: 20110708
  Transmission Date: 20111222
  Serious: No
  Sender: FDA-Public Use
  Company Number: US-BAYER-2011-060363

PATIENT
  Age: -1 Year
  Sex: Female

DRUGS (1)
  1. ALEVE (CAPLET) [Suspect]
     Indication: MYALGIA
     Dosage: 1 U, QD
     Route: 048
     Dates: start: 20110706, end: 20110706

REACTIONS (3)
  - URTICARIA [None]
  - PRURITUS [None]
  - SKIN DISORDER [None]
